FAERS Safety Report 7455832-2 (Version None)
Quarter: 2011Q2

REPORT INFORMATION
  Report Type: 
  Country: None (occurrence: None)
  Receive Date: 20110503
  Receipt Date: 20110422
  Transmission Date: 20111010
  Serious: Yes (Other)
  Sender: FDA-Public Use
  Company Number: PHHY2011US22741

PATIENT
  Sex: Female
  Weight: 63.492 kg

DRUGS (3)
  1. NUVIGIL [Concomitant]
     Dosage: UNK
  2. PRISTIQ [Concomitant]
  3. GILENYA [Suspect]
     Indication: MULTIPLE SCLEROSIS
     Dosage: 0.5 MG, QD
     Route: 048
     Dates: start: 20110303, end: 20110422

REACTIONS (5)
  - DIARRHOEA [None]
  - VIRAL INFECTION [None]
  - NAUSEA [None]
  - INFLUENZA LIKE ILLNESS [None]
  - DEHYDRATION [None]
